FAERS Safety Report 16011759 (Version 2)
Quarter: 2020Q2

REPORT INFORMATION
  Report Type: Spontaneous
  Country: US (occurrence: US)
  Receive Date: 20190227
  Receipt Date: 20200420
  Transmission Date: 20200713
  Serious: Yes (Other)
  Sender: FDA-Public Use
  Company Number: PHEH2019US008527

PATIENT
  Sex: Female

DRUGS (2)
  1. TASIGNA [Suspect]
     Active Substance: NILOTINIB
     Dosage: UNK, UNK
     Route: 048
     Dates: start: 201801, end: 201802
  2. TASIGNA [Suspect]
     Active Substance: NILOTINIB
     Indication: CHRONIC MYELOID LEUKAEMIA
     Dosage: 02 DF, BID
     Route: 048
     Dates: start: 20130604, end: 201507

REACTIONS (23)
  - Gout [Unknown]
  - Asthenia [Unknown]
  - Gastrooesophageal reflux disease [Unknown]
  - Pain [Unknown]
  - Headache [Unknown]
  - Hyperkalaemia [Unknown]
  - Emotional distress [Unknown]
  - Pneumonia [Unknown]
  - Coronary artery disease [Unknown]
  - Anaemia [Unknown]
  - Fatigue [Unknown]
  - Hyperlipidaemia [Unknown]
  - Renal failure [Unknown]
  - Anxiety [Unknown]
  - Cardiomyopathy [Unknown]
  - Acute sinusitis [Unknown]
  - Proteinuria [Unknown]
  - Back pain [Unknown]
  - Tooth infection [Unknown]
  - Injury [Unknown]
  - Dyspnoea [Unknown]
  - Cardiac failure congestive [Unknown]
  - Myocardial infarction [Unknown]
